FAERS Safety Report 5284831-4 (Version None)
Quarter: 2007Q2

REPORT INFORMATION
  Report Type: 
  Country: None (occurrence: None)
  Receive Date: 20070403
  Receipt Date: 20070323
  Transmission Date: 20071010
  Serious: Yes (Hospitalization, Other)
  Sender: FDA-Public Use
  Company Number: FR-GILEAD-2006-0010039

PATIENT
  Sex: Male
  Weight: 64.3 kg

DRUGS (8)
  1. TRUVADA [Suspect]
     Indication: HIV INFECTION
     Route: 048
     Dates: start: 20060726, end: 20060811
  2. SUSTIVA [Suspect]
     Indication: HIV INFECTION
     Route: 048
     Dates: start: 20060726, end: 20060811
  3. RIMIFON [Suspect]
     Indication: TUBERCULOSIS
     Route: 048
     Dates: start: 20060527, end: 20060811
  4. IZILOX [Suspect]
     Indication: TUBERCULOSIS
     Route: 048
     Dates: start: 20060610, end: 20060811
  5. BACTRIM [Suspect]
     Indication: PROPHYLAXIS
     Dates: start: 20060601
  6. DEXAMBUTOL [Concomitant]
     Indication: TUBERCULOSIS
     Route: 048
     Dates: start: 20060527, end: 20060809
  7. PIRILENE [Concomitant]
     Indication: TUBERCULOSIS
     Dates: start: 20060527, end: 20060811
  8. VITAMIN B1 AND B6 [Concomitant]
     Indication: TUBERCULOSIS
     Route: 048
     Dates: start: 20060614, end: 20060811

REACTIONS (4)
  - CYTOLYTIC HEPATITIS [None]
  - HEADACHE [None]
  - PULMONARY TUBERCULOSIS [None]
  - PYREXIA [None]
